FAERS Safety Report 6982438-1 (Version None)
Quarter: 2010Q3

REPORT INFORMATION
  Report Type: 
  Country: None (occurrence: None)
  Receive Date: 20100914
  Receipt Date: 20100105
  Transmission Date: 20110219
  Serious: No
  Sender: FDA-Public Use
  Company Number: US-PFIZER INC-2009301889

PATIENT
  Sex: Male

DRUGS (3)
  1. LYRICA [Suspect]
     Indication: PAIN
     Dosage: 50 MG, 2X/DAY
     Route: 048
     Dates: start: 20091101
  2. SODIUM CHLORIDE [Suspect]
     Indication: NASAL DRYNESS
     Dosage: UNK
  3. GLIMEPIRIDE [Concomitant]
     Indication: DIABETES MELLITUS
     Dosage: 0.5 MG, UNK

REACTIONS (4)
  - DYSPNOEA [None]
  - NASAL CONGESTION [None]
  - NASAL DRYNESS [None]
  - OROPHARYNGEAL PAIN [None]
